FAERS Safety Report 8314695-3 (Version None)
Quarter: 2012Q2

REPORT INFORMATION
  Report Type: 
  Country: None (occurrence: None)
  Receive Date: 20120426
  Receipt Date: 20120416
  Transmission Date: 20120825
  Serious: Yes (Hospitalization)
  Sender: FDA-Public Use
  Company Number: US-ELI_LILLY_AND_COMPANY-US201204005632

PATIENT
  Age: 45 Year
  Sex: Female

DRUGS (5)
  1. KEPPRA [Concomitant]
  2. ABILIFY [Concomitant]
  3. CYMBALTA [Suspect]
     Indication: DEPRESSION
     Dosage: 60 MG, QD
     Dates: end: 20120412
  4. LASIX [Concomitant]
  5. LOVENOX [Concomitant]

REACTIONS (2)
  - DRUG WITHDRAWAL SYNDROME [None]
  - SMALL INTESTINAL OBSTRUCTION [None]
